FAERS Safety Report 6454739-7 (Version None)
Quarter: 2009Q4

REPORT INFORMATION
  Report Type: 
  Country: None (occurrence: None)
  Receive Date: 20091124
  Receipt Date: 20091116
  Transmission Date: 20100525
  Serious: Yes (Hospitalization)
  Sender: FDA-Public Use
  Company Number: JP-WATSON-2009-09803

PATIENT
  Age: 54 Year
  Sex: Female

DRUGS (1)
  1. AFEDITAB CR [Suspect]
     Indication: HYPERTENSION
     Dosage: UNK
     Route: 048
     Dates: start: 20060201

REACTIONS (1)
  - PNEUMONIA [None]
